FAERS Safety Report 6011707-7 (Version None)
Quarter: 2008Q4

REPORT INFORMATION
  Report Type: 
  Country: None (occurrence: None)
  Receive Date: 20081218
  Receipt Date: 19910116
  Transmission Date: 20090506
  Serious: Yes (Death, Life-Threatening, Hospitalization, Disabling)
  Sender: FDA-Public Use
  Company Number: CA-ROCHE-900800054001

PATIENT
  Age: 35 Year
  Sex: Male

DRUGS (5)
  1. LARIAM [Suspect]
     Route: 048
     Dates: start: 19901003, end: 19901003
  2. LARIAM [Suspect]
     Route: 048
     Dates: start: 19901005, end: 19901015
  3. SPIRAMYCIN [Concomitant]
     Route: 042
  4. DICLAZURIL [Concomitant]
     Indication: DRUG USE FOR UNKNOWN INDICATION
     Route: 048
  5. SOMATOSTATIN [Concomitant]
     Indication: DRUG USE FOR UNKNOWN INDICATION
     Route: 058

REACTIONS (1)
  - DISEASE PROGRESSION [None]
